FAERS Safety Report 8475427-1 (Version None)
Quarter: 2012Q2

REPORT INFORMATION
  Report Type: 
  Country: None (occurrence: None)
  Receive Date: 20120628
  Receipt Date: 20120619
  Transmission Date: 20120825
  Serious: Yes (Hospitalization, Other)
  Sender: FDA-Public Use
  Company Number: US-JNJFOC-20120611993

PATIENT
  Sex: Female

DRUGS (21)
  1. LAMICTAL [Suspect]
     Indication: CONVULSION
     Route: 048
  2. LAMICTAL [Suspect]
     Route: 048
  3. LAMICTAL [Suspect]
     Indication: DRUG THERAPY
     Route: 048
  4. NEXIUM [Concomitant]
     Route: 065
  5. ASPIRIN [Concomitant]
     Route: 065
  6. LAMICTAL [Suspect]
     Route: 048
  7. ATIVAN [Concomitant]
     Route: 065
  8. FIORICET [Concomitant]
     Route: 065
  9. GINGER [Concomitant]
     Route: 065
  10. NICOTINE POLACRILEX [Suspect]
     Indication: SMOKING CESSATION THERAPY
     Route: 002
  11. LAMICTAL [Suspect]
     Route: 048
  12. ZOMIG [Concomitant]
     Route: 065
  13. LESCOL [Concomitant]
     Route: 065
  14. LAMICTAL [Suspect]
     Route: 048
  15. SEROQUEL [Suspect]
     Indication: DEPRESSION
     Route: 065
  16. LAMICTAL [Suspect]
     Route: 048
  17. EFFEXOR XR [Suspect]
     Indication: PRODUCT USED FOR UNKNOWN INDICATION
     Route: 048
  18. BUPROPION HYDROCHLORIDE [Concomitant]
     Route: 065
  19. TIGAN [Concomitant]
     Route: 065
  20. LAMICTAL [Suspect]
     Indication: MANIA
     Route: 048
  21. LORATADINE [Concomitant]
     Route: 065

REACTIONS (7)
  - GAIT DISTURBANCE [None]
  - ACCIDENTAL OVERDOSE [None]
  - TREMOR [None]
  - ACCIDENT [None]
  - THERAPEUTIC RESPONSE UNEXPECTED [None]
  - PAIN [None]
  - LIMB CRUSHING INJURY [None]
